FAERS Safety Report 22170658 (Version 3)
Quarter: 2023Q2

REPORT INFORMATION
  Report Type: Report from Study
  Country: CN (occurrence: CN)
  Receive Date: 20230404
  Receipt Date: 20230531
  Transmission Date: 20230722
  Serious: Yes (Hospitalization)
  Sender: FDA-Public Use
  Company Number: CN-BEIGENE AUS PTY LTD-BGN-2023-002335

PATIENT
  Age: 67 Year
  Sex: Male
  Weight: 58 kg

DRUGS (19)
  1. PLACEBO [Suspect]
     Active Substance: UNSPECIFIED INGREDIENT
     Indication: Non-small cell lung cancer metastatic
     Dosage: 900 MG, Q3W
     Route: 042
     Dates: start: 20221011
  2. PLACEBO [Suspect]
     Active Substance: UNSPECIFIED INGREDIENT
     Dosage: 900 MG, Q3W
     Route: 042
     Dates: start: 20230303, end: 20230303
  3. TISLELIZUMAB [Suspect]
     Active Substance: TISLELIZUMAB
     Indication: Non-small cell lung cancer metastatic
     Dosage: 200 MG, Q3W
     Route: 042
     Dates: start: 20221011
  4. TISLELIZUMAB [Suspect]
     Active Substance: TISLELIZUMAB
     Dosage: 200 MG, Q3W
     Route: 042
     Dates: start: 20230303, end: 20230303
  5. PEMETREXED [Suspect]
     Active Substance: PEMETREXED
     Indication: Non-small cell lung cancer metastatic
     Dosage: 804 MG
     Route: 042
     Dates: start: 20221011
  6. PEMETREXED [Suspect]
     Active Substance: PEMETREXED
     Dosage: 800 MG
     Route: 042
     Dates: start: 20230303, end: 20230303
  7. CARBOPLATIN [Suspect]
     Active Substance: CARBOPLATIN
     Indication: Non-small cell lung cancer metastatic
     Dosage: 528 MG
     Route: 042
     Dates: start: 20221011
  8. CARBOPLATIN [Suspect]
     Active Substance: CARBOPLATIN
     Dosage: 521 MG
     Route: 042
     Dates: start: 20230104, end: 20230104
  9. FOLIC ACID [Concomitant]
     Active Substance: FOLIC ACID
     Indication: Prophylactic chemotherapy
     Dosage: UNK
     Route: 065
     Dates: start: 20220930
  10. VALSARTAN [Concomitant]
     Active Substance: VALSARTAN
     Indication: Hypertension
     Dosage: UNK
     Route: 065
  11. NIFEDIPINE [Concomitant]
     Active Substance: NIFEDIPINE
     Indication: Hypertension
     Dosage: UNK
     Route: 065
  12. GLIMEPIRIDE [Concomitant]
     Active Substance: GLIMEPIRIDE
     Indication: Diabetes mellitus
     Dosage: UNK
     Route: 065
     Dates: start: 20221123, end: 20230303
  13. INSULIN GLARGINE [Concomitant]
     Active Substance: INSULIN GLARGINE
     Indication: Diabetes mellitus
     Dosage: UNK
     Route: 065
     Dates: start: 20221123
  14. DAPAGLIFLOZIN [Concomitant]
     Active Substance: DAPAGLIFLOZIN
     Indication: Diabetes mellitus
     Dosage: UNK
     Route: 065
     Dates: start: 20221123, end: 20230303
  15. DEXAMETHASONE [Concomitant]
     Active Substance: DEXAMETHASONE
     Indication: Drug toxicity prophylaxis
     Dosage: UNK
     Route: 065
     Dates: start: 20230302, end: 20230304
  16. LANSOPRAZOLE [Concomitant]
     Active Substance: LANSOPRAZOLE
     Indication: Prophylaxis
     Dosage: UNK
     Route: 065
     Dates: start: 20230302, end: 20230304
  17. TROPISETRON HYDROCHLORIDE [Concomitant]
     Active Substance: TROPISETRON HYDROCHLORIDE
     Indication: Antiemetic supportive care
     Dosage: UNK
     Route: 065
     Dates: start: 20230303, end: 20230303
  18. INCADRONATE DISODIUM [Concomitant]
     Active Substance: INCADRONATE DISODIUM
     Indication: Bone disorder
     Dosage: UNK
     Route: 065
     Dates: start: 20230303, end: 20230303
  19. LEUCOGEN [Concomitant]
     Active Substance: LEUCOGEN
     Indication: Thrombocytopenia
     Dosage: UNK
     Route: 065
     Dates: start: 20221221

REACTIONS (2)
  - Urinary tract infection [Not Recovered/Not Resolved]
  - Chronic kidney disease [Not Recovered/Not Resolved]

NARRATIVE: CASE EVENT DATE: 20230321
